FAERS Safety Report 7307156-1 (Version None)
Quarter: 2011Q1

REPORT INFORMATION
  Report Type: 
  Country: None (occurrence: None)
  Receive Date: 20110223
  Receipt Date: 20110209
  Transmission Date: 20110831
  Serious: Yes (Death)
  Sender: FDA-Public Use
  Company Number: US-CELGENEUS-163-21880-11010866

PATIENT
  Sex: Male

DRUGS (6)
  1. REVLIMID [Suspect]
     Indication: MULTIPLE MYELOMA
     Route: 048
     Dates: start: 20100830
  2. REVLIMID [Suspect]
     Route: 048
     Dates: start: 20101001
  3. REGLAN [Concomitant]
     Indication: NAUSEA
     Route: 048
     Dates: start: 20101202, end: 20101231
  4. REVLIMID [Suspect]
     Route: 048
     Dates: start: 20101202
  5. XANAX [Concomitant]
     Indication: ANXIETY
     Route: 048
     Dates: start: 20101102, end: 20101231
  6. MEGACE [Concomitant]
     Route: 048
     Dates: start: 20101202, end: 20101231

REACTIONS (1)
  - MULTIPLE MYELOMA [None]
